FAERS Safety Report 9791708 (Version 1)
Quarter: 2014Q1

REPORT INFORMATION
  Report Type: Spontaneous
  Country: IN (occurrence: IN)
  Receive Date: 20140102
  Receipt Date: 20140102
  Transmission Date: 20141002
  Serious: Yes (Death, Other)
  Sender: FDA-Public Use
  Company Number: IN-009507513-1312IND012608

PATIENT
  Age: 70 Year
  Sex: Male

DRUGS (1)
  1. JANUMET [Suspect]
     Dosage: 50/500 1/DAY
     Route: 048

REACTIONS (1)
  - Myocardial infarction [Fatal]
